FAERS Safety Report 6110296 (Version 2)
Quarter: 2013Q2

REPORT INFORMATION
  Report Type: Spontaneous
  Country: US (occurrence: US)
  Receive Date: 20060818
  Receipt Date: 20130531
  Transmission Date: 20140414
  Serious: Yes (Other)
  Sender: FDA-Public Use
  Company Number: US-JNJFOC-20060803572

PATIENT
  Sex: Female

DRUGS (10)
  1. IBUPROFEN 800 MG [Suspect]
     Indication: FIBROMYALGIA
     Dates: start: 2006
  2. IBUPROFEN 800 MG [Suspect]
     Indication: SWELLING
     Dates: start: 2006
  3. CHANTIX [Interacting]
     Indication: SMOKING CESSATION THERAPY
     Route: 048
     Dates: start: 20060729
  4. CHANTIX [Interacting]
     Indication: SMOKING CESSATION THERAPY
     Route: 048
     Dates: start: 20060714
  5. CHANTIX [Interacting]
     Indication: SMOKING CESSATION THERAPY
     Route: 048
     Dates: start: 200607
  6. PROVIGIL [Interacting]
     Indication: NARCOLEPSY
     Route: 065
     Dates: start: 20060705
  7. NORCO [Interacting]
     Indication: NECK PAIN
     Route: 065
  8. UNSPECIFIED MEDICATIONS [Concomitant]
     Indication: PRODUCT USED FOR UNKNOWN INDICATION
  9. UNSPECIFIED STOOL SOFTENER [Concomitant]
     Indication: CONSTIPATION
  10. CORRECTOL [Concomitant]
     Indication: CONSTIPATION

REACTIONS (4)
  - Narcolepsy [Unknown]
  - Drug interaction [Unknown]
  - Constipation [Not Recovered/Not Resolved]
  - Flatulence [Not Recovered/Not Resolved]
